FAERS Safety Report 7564751-2 (Version None)
Quarter: 2011Q2

REPORT INFORMATION
  Report Type: 
  Country: None (occurrence: None)
  Receive Date: 20110622
  Receipt Date: 20101119
  Transmission Date: 20111010
  Serious: Yes (Other)
  Sender: FDA-Public Use
  Company Number: US-MYLANLABS-2010S1019485

PATIENT
  Age: 31 Year
  Sex: Male

DRUGS (5)
  1. CLOZAPINE [Suspect]
     Route: 048
     Dates: start: 20101014, end: 20101020
  2. CLONIDINE [Concomitant]
     Route: 048
     Dates: start: 20100701
  3. HALDOL [Concomitant]
     Route: 030
     Dates: start: 20100301
  4. BENZTROPINE MESYLATE [Concomitant]
     Route: 048
  5. BUPROPION HCL [Concomitant]
     Route: 048
     Dates: start: 20100801

REACTIONS (1)
  - GRANULOCYTOPENIA [None]
